FAERS Safety Report 4536595-7 (Version None)
Quarter: 2004Q4

REPORT INFORMATION
  Report Type: 
  Country: None (occurrence: None)
  Receive Date: 20041222
  Receipt Date: 20041222
  Transmission Date: 20050328
  Serious: Yes (Other)
  Sender: FDA-Public Use
  Company Number: None

PATIENT
  Sex: Male
  Weight: 56.6996 kg

DRUGS (3)
  1. RISPERDAL [Suspect]
     Indication: TOURETTE'S DISORDER
     Dosage: 2.5 MG DAILY ORAL
     Route: 048
     Dates: start: 19960715, end: 20041108
  2. EFFEXOR XR [Concomitant]
  3. ADDERALL 20 [Concomitant]

REACTIONS (1)
  - TARDIVE DYSKINESIA [None]
